FAERS Safety Report 5505892-0 (Version None)
Quarter: 2007Q4

REPORT INFORMATION
  Report Type: 
  Country: None (occurrence: None)
  Receive Date: 20071102
  Receipt Date: 20071024
  Transmission Date: 20080405
  Serious: Yes (Hospitalization)
  Sender: FDA-Public Use
  Company Number: JP-PFIZER INC-2007090152

PATIENT
  Sex: Male

DRUGS (4)
  1. AZULFIDINE EN-TABS [Suspect]
     Indication: RHEUMATOID ARTHRITIS
  2. RIMATIL [Suspect]
     Indication: RHEUMATOID ARTHRITIS
  3. MOVER [Concomitant]
  4. PREDNISOLONE [Concomitant]

REACTIONS (2)
  - LUNG DISORDER [None]
  - RASH [None]
